FAERS Safety Report 17048409 (Version 1)
Quarter: 2019Q4

REPORT INFORMATION
  Report Type: Spontaneous
  Country: NL (occurrence: NL)
  Receive Date: 20191119
  Receipt Date: 20191119
  Transmission Date: 20200122
  Serious: Yes (Hospitalization)
  Sender: FDA-Public Use
  Company Number: NL-MYLANLABS-2019M1109416

PATIENT
  Age: 53 Year
  Sex: Female
  Weight: 99 kg

DRUGS (1)
  1. LISINOPRIL. [Suspect]
     Active Substance: LISINOPRIL
     Indication: PRODUCT USED FOR UNKNOWN INDICATION
     Dosage: 1XPD
     Route: 048
     Dates: start: 20190502, end: 20190526

REACTIONS (9)
  - Oesophageal pain [Recovering/Resolving]
  - Dysphonia [Recovering/Resolving]
  - Musculoskeletal discomfort [Recovering/Resolving]
  - Dyspnoea [Recovering/Resolving]
  - Eructation [Recovering/Resolving]
  - Dizziness [Recovering/Resolving]
  - Sensation of foreign body [Recovering/Resolving]
  - Chest discomfort [Recovering/Resolving]
  - Dysphagia [Recovering/Resolving]

NARRATIVE: CASE EVENT DATE: 20190525
